FAERS Safety Report 4283573-1 (Version None)
Quarter: 2004Q1

REPORT INFORMATION
  Report Type: 
  Country: None (occurrence: None)
  Receive Date: 20040202
  Receipt Date: 20040130
  Transmission Date: 20041129
  Serious: Yes (Other)
  Sender: FDA-Public Use
  Company Number: US-GLAXOSMITHKLINE-A0495955A

PATIENT
  Sex: Male

DRUGS (9)
  1. AVANDIA [Suspect]
     Dosage: 4MG PER DAY
     Route: 048
  2. GLUCOTROL [Concomitant]
  3. GEMFIBROZIL [Concomitant]
  4. PLAVIX [Concomitant]
  5. PRILOSEC [Concomitant]
  6. ISOSORBIDE DINITRATE [Concomitant]
  7. FOLIC ACID [Concomitant]
  8. IRON SUPPLEMENT [Concomitant]
  9. EPOGEN [Concomitant]

REACTIONS (3)
  - ANAEMIA [None]
  - HYPOGLYCAEMIA [None]
  - WHITE BLOOD CELL COUNT DECREASED [None]
